FAERS Safety Report 10473442 (Version 3)
Quarter: 2015Q2

REPORT INFORMATION
  Report Type: Spontaneous
  Country: US (occurrence: US)
  Receive Date: 20140924
  Receipt Date: 20150626
  Transmission Date: 20150821
  Serious: Yes (Life-Threatening, Hospitalization, Other)
  Sender: FDA-Public Use
  Company Number: US-BAYER-2014-142289

PATIENT
  Age: 24 Year
  Sex: Female
  Weight: 72.11 kg

DRUGS (1)
  1. MIRENA [Suspect]
     Active Substance: LEVONORGESTREL
     Indication: CONTRACEPTION
     Dosage: 20 MCG/DL, CONT
     Route: 015
     Dates: start: 20110414, end: 20121026

REACTIONS (13)
  - Uterine perforation [None]
  - Anxiety [None]
  - Procedural pain [None]
  - Infection [None]
  - Anhedonia [None]
  - Emotional distress [None]
  - Device issue [None]
  - Genital haemorrhage [None]
  - Injury [None]
  - General physical health deterioration [None]
  - Abdominal pain [None]
  - Pain [None]
  - Stress [None]

NARRATIVE: CASE EVENT DATE: 20121018
